FAERS Safety Report 10369721 (Version 1)
Quarter: 2014Q3

REPORT INFORMATION
  Report Type: Spontaneous
  Country: US (occurrence: US)
  Receive Date: 20140807
  Receipt Date: 20140807
  Transmission Date: 20150326
  Serious: No
  Sender: FDA-Public Use
  Company Number: US-GILEAD-2014-0111027

PATIENT
  Age: 62 Year
  Sex: Female
  Weight: 66.21 kg

DRUGS (2)
  1. OLYSIO [Suspect]
     Active Substance: SIMEPREVIR
     Indication: HEPATITIS C
     Dosage: UNK
     Route: 065
     Dates: start: 20140513, end: 20140805
  2. SOVALDI [Suspect]
     Active Substance: SOFOSBUVIR
     Indication: HEPATITIS C
     Dosage: 400 MG, UNK
     Route: 065
     Dates: start: 20140513, end: 20140805

REACTIONS (5)
  - Decreased activity [Unknown]
  - Migraine [Unknown]
  - Heart rate increased [Unknown]
  - Neck pain [Unknown]
  - Insomnia [Unknown]
